FAERS Safety Report 5005504-9 (Version None)
Quarter: 2006Q2

REPORT INFORMATION
  Report Type: 
  Country: None (occurrence: None)
  Receive Date: 20060518
  Receipt Date: 20060308
  Transmission Date: 20061013
  Serious: Yes (Hospitalization, Disabling)
  Sender: FDA-Public Use
  Company Number: US-MERCK-0603USA01504

PATIENT
  Age: 53 Year
  Sex: Female
  Weight: 113 kg

DRUGS (20)
  1. ALTACE [Concomitant]
     Route: 065
  2. ZOLOFT [Concomitant]
     Route: 065
  3. AMBIEN [Concomitant]
     Route: 065
  4. ATENOLOL [Concomitant]
     Route: 065
  5. VASOTEC [Concomitant]
     Route: 065
  6. ZYRTEC [Concomitant]
     Route: 065
  7. LASIX [Concomitant]
     Route: 065
  8. CADUET [Concomitant]
     Route: 065
  9. NOVOLOG [Concomitant]
     Route: 065
  10. PRILOSEC [Concomitant]
     Route: 065
  11. NEXIUM [Concomitant]
     Route: 065
  12. LIPITOR [Concomitant]
     Route: 065
  13. DIOVAN HCT [Concomitant]
     Route: 065
  14. VIOXX [Suspect]
     Indication: DYSMENORRHOEA
     Route: 048
     Dates: start: 20020525, end: 20040101
  15. VIOXX [Suspect]
     Indication: PAIN IN EXTREMITY
     Route: 048
     Dates: start: 20020525, end: 20040101
  16. LISINOPRIL [Concomitant]
     Route: 065
  17. NORVASC [Concomitant]
     Route: 065
  18. ACTOS [Concomitant]
     Route: 065
  19. GLUCOPHAGE [Concomitant]
     Route: 065
  20. GLYBURIDE [Concomitant]
     Route: 065

REACTIONS (15)
  - AMNESIA [None]
  - CEREBRAL ARTERIOSCLEROSIS [None]
  - CEREBROVASCULAR ACCIDENT [None]
  - CHEST PAIN [None]
  - FLANK PAIN [None]
  - GASTRIC ULCER HAEMORRHAGE [None]
  - GASTROOESOPHAGEAL REFLUX DISEASE [None]
  - HAEMATOCHEZIA [None]
  - HALLUCINATION [None]
  - IRON DEFICIENCY ANAEMIA [None]
  - JOINT INJURY [None]
  - OEDEMA [None]
  - TENDON INJURY [None]
  - TRANSIENT ISCHAEMIC ATTACK [None]
  - VITREOUS HAEMORRHAGE [None]
